FAERS Safety Report 10302296 (Version 1)
Quarter: 2014Q3

REPORT INFORMATION
  Report Type: Spontaneous
  Country: US (occurrence: None)
  Receive Date: 20140709
  Receipt Date: 20140709
  Transmission Date: 20150326
  Serious: Yes (Hospitalization)
  Sender: FDA-Public Use
  Company Number: 2014HINLIT0593

PATIENT
  Age: 69 Year
  Sex: Female

DRUGS (3)
  1. ACYCLOVIR. [Suspect]
     Active Substance: ACYCLOVIR
     Indication: PRODUCT USED FOR UNKNOWN INDICATION
     Route: 042
  2. LINEZOLID (LINEZOLID) [Concomitant]
     Active Substance: LINEZOLID
  3. CEFEPIME [Concomitant]
     Active Substance: CEFEPIME\CEFEPIME HYDROCHLORIDE

REACTIONS (7)
  - Neurotoxicity [None]
  - Haemodialysis [None]
  - Unresponsive to stimuli [None]
  - Stupor [None]
  - Myoclonus [None]
  - Confusional state [None]
  - Depressed level of consciousness [None]
